FAERS Safety Report 4432552-X (Version None)
Quarter: 2004Q3

REPORT INFORMATION
  Report Type: 
  Country: None (occurrence: None)
  Receive Date: 20040820
  Receipt Date: 20040719
  Transmission Date: 20050211
  Serious: No
  Sender: FDA-Public Use
  Company Number: 040041

PATIENT
  Age: 39 Year
  Sex: Female
  Weight: 81.6475 kg

DRUGS (1)
  1. MIRALAX [Suspect]
     Indication: CONSTIPATION
     Dosage: 17 GRAMS DAILY PO
     Route: 048
     Dates: start: 20040715, end: 20040719

REACTIONS (2)
  - DIARRHOEA [None]
  - DRUG EXPOSURE VIA BREAST MILK [None]
